FAERS Safety Report 16890350 (Version 1)
Quarter: 2019Q4

REPORT INFORMATION
  Report Type: Spontaneous
  Country: US (occurrence: US)
  Receive Date: 20190812
  Receipt Date: 20190812
  Transmission Date: 20200122
  Serious: No
  Sender: FDA-Public Use
  Company Number: None

PATIENT
  Age: 67 Year
  Sex: Female

DRUGS (1)
  1. ENBREL [Suspect]
     Active Substance: ETANERCEPT
     Dosage: ?          OTHER FREQUENCY:OTHER;?
     Dates: start: 201907

REACTIONS (4)
  - Product use issue [None]
  - Product storage error [None]
  - Wrong technique in product usage process [None]
  - Ill-defined disorder [None]

NARRATIVE: CASE EVENT DATE: 20190723
